FAERS Safety Report 5109316-7 (Version None)
Quarter: 2006Q3

REPORT INFORMATION
  Report Type: 
  Country: None (occurrence: None)
  Receive Date: 20060920
  Receipt Date: 20060519
  Transmission Date: 20061208
  Serious: Yes (Hospitalization)
  Sender: FDA-Public Use
  Company Number: SE-GLAXOSMITHKLINE-B0425122A

PATIENT
  Age: 28 Year
  Sex: Female

DRUGS (2)
  1. LAMICTAL [Suspect]
     Indication: DEPRESSION
     Dosage: 25MG PER DAY
     Route: 048
     Dates: start: 20060312, end: 20060328
  2. EFFEXOR [Concomitant]
     Route: 065

REACTIONS (6)
  - BACK PAIN [None]
  - BLISTER [None]
  - LOCAL SWELLING [None]
  - ORAL DISCOMFORT [None]
  - RASH [None]
  - SKIN BURNING SENSATION [None]
